FAERS Safety Report 11516540 (Version 1)
Quarter: 2015Q3

REPORT INFORMATION
  Report Type: Spontaneous
  Country: US (occurrence: None)
  Receive Date: 20150915
  Receipt Date: 20150915
  Transmission Date: 20151125
  Serious: Yes (Life-Threatening, Hospitalization, Other)
  Sender: FDA-Public Use
  Company Number: 54973 AE # 1640

PATIENT
  Age: 5 Month
  Sex: Female

DRUGS (1)
  1. BABY TEETHING [Suspect]
     Active Substance: ATROPA BELLADONNA\CALCIUM PHOSPHATE\CHAMOMILE\COFFEA ARABICA FRUIT
     Indication: TEETHING
     Dosage: 1 DOSE X 2 DAYS

REACTIONS (2)
  - Seizure [None]
  - Apnoea [None]

NARRATIVE: CASE EVENT DATE: 20150826
